FAERS Safety Report 16701995 (Version 1)
Quarter: 2019Q3

REPORT INFORMATION
  Report Type: Spontaneous
  Country: JP (occurrence: JP)
  Receive Date: 20190814
  Receipt Date: 20190814
  Transmission Date: 20191004
  Serious: Yes (Other)
  Sender: FDA-Public Use
  Company Number: JP-TEVA-2019-JP-1093080

PATIENT
  Age: 64 Year
  Sex: Male

DRUGS (11)
  1. RITUXIMAB. [Suspect]
     Active Substance: RITUXIMAB
     Indication: B-CELL LYMPHOMA
     Dosage: 600MGX1/DAY, CYCLIC
     Route: 041
     Dates: start: 20180423
  2. RITUXIMAB. [Suspect]
     Active Substance: RITUXIMAB
     Dosage: 600MGX1/DAY, CYCLIC
     Route: 041
     Dates: start: 20180824
  3. RITUXIMAB. [Suspect]
     Active Substance: RITUXIMAB
     Dosage: 600MGX1/DAY, CYCLIC
     Route: 041
     Dates: start: 20180803
  4. RITUXIMAB. [Suspect]
     Active Substance: RITUXIMAB
     Dosage: 600MGX1/DAY, CYCLIC
     Route: 041
     Dates: start: 20180515
  5. RITUXIMAB. [Suspect]
     Active Substance: RITUXIMAB
     Dosage: 600MGX1/DAY, CYCLIC
     Route: 041
     Dates: start: 20180907
  6. RITUXIMAB. [Suspect]
     Active Substance: RITUXIMAB
     Dosage: 600MGX1/DAY, CYCLIC
     Route: 041
     Dates: start: 20180605
  7. RITUXIMAB. [Suspect]
     Active Substance: RITUXIMAB
     Dosage: 600MGX1/DAY, CYCLIC
     Route: 041
     Dates: start: 20180706
  8. RITUXIMAB. [Suspect]
     Active Substance: RITUXIMAB
     Dosage: 600MGX1/DAY, CYCLIC
     Route: 041
     Dates: start: 20180720
  9. BENDAMUSTINE HYDROCHLORIDE. [Suspect]
     Active Substance: BENDAMUSTINE HYDROCHLORIDE
     Dosage: 160 MG, ONCE DAILY, CYCLIC (SECOND CYCLE)
     Route: 042
     Dates: start: 20180516, end: 20180517
  10. BENDAMUSTINE HYDROCHLORIDE. [Suspect]
     Active Substance: BENDAMUSTINE HYDROCHLORIDE
     Indication: B-CELL LYMPHOMA
     Dosage: 160 MG, ONCE DAILY, CYCLIC (FIRST CYCLE)
     Route: 042
     Dates: start: 20180424, end: 20180425
  11. BENDAMUSTINE HYDROCHLORIDE. [Suspect]
     Active Substance: BENDAMUSTINE HYDROCHLORIDE
     Dosage: 160 MG, ONCE DAILY, CYCLIC (THIRD CYCLE)
     Route: 042
     Dates: start: 20180606, end: 20180607

REACTIONS (7)
  - Neutrophil morphology abnormal [Unknown]
  - Polymorphonuclear chromatin clumping [Unknown]
  - Myelodysplastic syndrome [Recovering/Resolving]
  - Bone marrow failure [Unknown]
  - Dysplasia [Unknown]
  - Megakaryocytes decreased [Unknown]
  - Monocyte count increased [Unknown]

NARRATIVE: CASE EVENT DATE: 201809
